FAERS Safety Report 8246188-6 (Version None)
Quarter: 2012Q1

REPORT INFORMATION
  Report Type: 
  Country: None (occurrence: None)
  Receive Date: 20120330
  Receipt Date: 20120329
  Transmission Date: 20120608
  Serious: Yes (Disabling, Other)
  Sender: FDA-Public Use
  Company Number: PHHY2012CH026951

PATIENT
  Age: 39 Year
  Sex: Male
  Weight: 50 kg

DRUGS (2)
  1. VOTRIENT [Concomitant]
     Indication: RENAL CANCER
     Dosage: 400 MG, BID
     Route: 048
     Dates: start: 20110301
  2. ZOMETA [Suspect]
     Indication: PROPHYLAXIS
     Dosage: 4 MG EVERY 4 WEEKS
     Route: 042
     Dates: start: 20110301, end: 20120306

REACTIONS (4)
  - GENERAL PHYSICAL CONDITION ABNORMAL [None]
  - OSTEONECROSIS OF JAW [None]
  - PRIMARY SEQUESTRUM [None]
  - GINGIVAL RECESSION [None]
